FAERS Safety Report 6153598-X (Version None)
Quarter: 2009Q2

REPORT INFORMATION
  Report Type: 
  Country: None (occurrence: None)
  Receive Date: 20090413
  Receipt Date: 20090401
  Transmission Date: 20091009
  Serious: Yes (Other)
  Sender: FDA-Public Use
  Company Number: CA-PFIZER INC-2009181885

PATIENT

DRUGS (2)
  1. CHAMPIX [Suspect]
     Indication: SMOKING CESSATION THERAPY
     Dosage: UNK
     Route: 048
     Dates: start: 20090204, end: 20090228
  2. MULTI-VITAMINS [Concomitant]
     Dosage: UNKNOWN
     Dates: start: 20000101

REACTIONS (5)
  - ACNE [None]
  - DEPRESSION [None]
  - ORAL HERPES [None]
  - SKIN DISORDER [None]
  - SKIN EXFOLIATION [None]
